FAERS Safety Report 5637307-6 (Version None)
Quarter: 2008Q1

REPORT INFORMATION
  Report Type: 
  Country: None (occurrence: None)
  Receive Date: 20080220
  Receipt Date: 20080206
  Transmission Date: 20080703
  Serious: Yes (Hospitalization)
  Sender: FDA-Public Use
  Company Number: US022610

PATIENT
  Sex: Female
  Weight: 58.9676 kg

DRUGS (6)
  1. PROVIGIL [Suspect]
     Dosage: 200 MG QD ORAL
     Route: 048
     Dates: start: 20070901
  2. LITHIUM CARBONATE [Concomitant]
  3. ABILIFY [Concomitant]
  4. WELLBUTRIN [Concomitant]
  5. KLONOPIN [Concomitant]
  6. SEROQUEL [Concomitant]

REACTIONS (4)
  - AGGRESSION [None]
  - HALLUCINATION [None]
  - HYPOMANIA [None]
  - SUICIDE ATTEMPT [None]
